FAERS Safety Report 9234433 (Version 2)
Quarter: 2013Q4

REPORT INFORMATION
  Report Type: Spontaneous
  Country: CA (occurrence: FR)
  Receive Date: 20130416
  Receipt Date: 20131004
  Transmission Date: 20140711
  Serious: Yes (Other)
  Sender: FDA-Public Use
  Company Number: US-ALEXION-A201300785

PATIENT
  Sex: 0

DRUGS (2)
  1. SOLIRIS 300MG [Suspect]
     Indication: GENE MUTATION
     Dosage: UNK
     Route: 042
  2. PLASMA [Concomitant]
     Route: 042

REACTIONS (2)
  - Haemolytic uraemic syndrome [Unknown]
  - Disease recurrence [Unknown]
